FAERS Safety Report 21046072 (Version 1)
Quarter: 2022Q3

REPORT INFORMATION
  Report Type: Report from Study
  Country: SK (occurrence: SK)
  Receive Date: 20220706
  Receipt Date: 20220706
  Transmission Date: 20221027
  Serious: Yes (Other)
  Sender: FDA-Public Use
  Company Number: SK-JNJFOC-20220536913

PATIENT
  Sex: Male

DRUGS (1)
  1. IMBRUVICA [Suspect]
     Active Substance: IBRUTINIB
     Indication: Chronic lymphocytic leukaemia
     Route: 048
     Dates: end: 20220504

REACTIONS (3)
  - Thrombosis [Recovered/Resolved]
  - Surgery [Unknown]
  - Arteritis [Recovering/Resolving]

NARRATIVE: CASE EVENT DATE: 20220306
